FAERS Safety Report 9384232 (Version 4)
Quarter: 2014Q4

REPORT INFORMATION
  Report Type: Spontaneous
  Country: JP (occurrence: JP)
  Receive Date: 20130705
  Receipt Date: 20141205
  Transmission Date: 20150529
  Serious: Yes (Hospitalization, Other)
  Sender: FDA-Public Use
  Company Number: JP-009507513-1307JPN001463

PATIENT
  Age: 47 Year
  Sex: Male
  Weight: 80.3 kg

DRUGS (16)
  1. REBETOL [Suspect]
     Active Substance: RIBAVIRIN
     Dosage: 600 MG, QD
     Route: 048
     Dates: start: 20130625
  2. PEGINTRON [Suspect]
     Active Substance: PEGINTERFERON ALFA-2B
     Dosage: 80 MICROGRAM, QW
     Route: 058
  3. URSO [Concomitant]
     Active Substance: URSODIOL
     Indication: CHRONIC HEPATITIS C
     Dosage: 600 MG, QD, FORMULATION:POR
     Route: 048
     Dates: end: 20130527
  4. PARIET [Concomitant]
     Active Substance: RABEPRAZOLE SODIUM
     Dosage: 10 MG, QD, FORMULATION:POR
     Route: 048
  5. REBETOL [Suspect]
     Active Substance: RIBAVIRIN
     Dosage: 1000 MG, UNK
     Route: 048
  6. LOPEMIN [Concomitant]
     Active Substance: LOPERAMIDE HYDROCHLORIDE
     Dosage: FORMULATION: POR, PRN(DAILY DOSAGE UNKNOWN)
     Route: 048
     Dates: start: 20130612
  7. PEGINTRON [Suspect]
     Active Substance: PEGINTERFERON ALFA-2B
     Indication: CHRONIC HEPATITIS C
     Dosage: 1.5 MICROGRAM PER KILOGRAM, DAILY DOSE UNKNOWN
     Route: 058
  8. PEGINTRON [Suspect]
     Active Substance: PEGINTERFERON ALFA-2B
     Dosage: 100 MICROGRAM, DAILY DOSE  UNKNOWN
     Route: 058
     Dates: start: 20130626
  9. PEGINTRON [Suspect]
     Active Substance: PEGINTERFERON ALFA-2B
     Dosage: 100
     Dates: start: 201305
  10. NEO-MINOPHAGEN C [Concomitant]
     Active Substance: AMMONIUM GLYCYRRHIZATE
     Indication: CHRONIC HEPATITIS C
     Dosage: 40 ML, QD
     Route: 042
     Dates: start: 20130510, end: 20130522
  11. TELAVIC [Suspect]
     Active Substance: TELAPREVIR
     Indication: CHRONIC HEPATITIS C
     Dosage: 2.25 G, QD
     Route: 048
     Dates: start: 20130509, end: 20130621
  12. LAC-B [Concomitant]
     Active Substance: BIFIDOBACTERIUM SPP.
     Dosage: 3 G, QD, FORMULATION: POR
     Route: 048
     Dates: start: 20130605
  13. REBETOL [Suspect]
     Active Substance: RIBAVIRIN
     Indication: CHRONIC HEPATITIS C
     Dosage: 1000 MG, QD
     Route: 048
     Dates: start: 20130509, end: 20130621
  14. GLYCYRON [Concomitant]
     Active Substance: AMMONIUM GLYCYRRHIZATE\GLYCINE\METHIONINE
     Indication: CHRONIC HEPATITIS C
     Dosage: 3 DF, QD
     Route: 048
     Dates: end: 20130527
  15. BAYASPIRIN [Concomitant]
     Active Substance: ASPIRIN
     Dosage: 100 MG, QD, FORMULATION:POR
     Route: 048
  16. UNISIA [Concomitant]
     Active Substance: AMLODIPINE BESYLATE\CANDESARTAN CILEXETIL
     Dosage: 1 DF, QD
     Route: 048

REACTIONS (3)
  - Neutrophil count decreased [Unknown]
  - Renal impairment [Recovering/Resolving]
  - Pancreatitis acute [Not Recovered/Not Resolved]

NARRATIVE: CASE EVENT DATE: 2013
